FAERS Safety Report 20329210 (Version 3)
Quarter: 2022Q2

REPORT INFORMATION
  Report Type: Spontaneous
  Country: US (occurrence: US)
  Receive Date: 20220112
  Receipt Date: 20220412
  Transmission Date: 20220721
  Serious: No
  Sender: FDA-Public Use
  Company Number: US-PFIZER INC-202101440604

PATIENT
  Age: 57 Year
  Sex: Female
  Weight: 87.075 kg

DRUGS (26)
  1. IBRANCE [Interacting]
     Active Substance: PALBOCICLIB
     Indication: Breast cancer female
     Dosage: 125 MG, CYCLIC (1 DAILY 21 DAYS THEN 7 DAYS OFF)
     Route: 048
     Dates: start: 20210911
  2. HERBALS\TURMERIC [Interacting]
     Active Substance: HERBALS\TURMERIC
     Dosage: UNK
  3. ACETAMINOPHEN [Concomitant]
     Active Substance: ACETAMINOPHEN
  4. IBUPROFEN [Concomitant]
     Active Substance: IBUPROFEN
  5. MIRALAX [Interacting]
     Active Substance: POLYETHYLENE GLYCOL 3350
     Dosage: UNK
  6. ALLOPURINOL [Concomitant]
     Active Substance: ALLOPURINOL
     Dosage: UNK
  7. ASPIRIN [Concomitant]
     Active Substance: ASPIRIN
     Dosage: UNK
  8. MONTELUKAST SODIUM [Concomitant]
     Active Substance: MONTELUKAST SODIUM
     Dosage: UNK
  9. ONDANSETRON [Concomitant]
     Active Substance: ONDANSETRON
     Dosage: UNK
  10. PROCHLORPERAZINE MALEATE [Concomitant]
     Active Substance: PROCHLORPERAZINE MALEATE
     Dosage: UNK
  11. SYNTHROID [Concomitant]
     Active Substance: LEVOTHYROXINE SODIUM
     Dosage: INCREASED TO 112MCG
  12. TYLENOL [Concomitant]
     Active Substance: ACETAMINOPHEN
     Dosage: UNK
  13. BISACODYL [Concomitant]
     Active Substance: BISACODYL
     Dosage: UNK
  14. CARVEDILOL [Concomitant]
     Active Substance: CARVEDILOL
     Dosage: UNK
  15. CITROMA [Concomitant]
     Active Substance: MAGNESIUM CITRATE
     Dosage: UNK
  16. COLCHICINE [Concomitant]
     Active Substance: COLCHICINE
     Dosage: UNK
  17. COMPAZINE [Concomitant]
     Active Substance: PROCHLORPERAZINE MALEATE
     Dosage: UNK
  18. FASLODEX [Concomitant]
     Active Substance: FULVESTRANT
     Dosage: UNK
  19. GLYBURIDE [Concomitant]
     Active Substance: GLYBURIDE
     Dosage: UNK
  20. LISINOPRIL [Concomitant]
     Active Substance: LISINOPRIL
     Dosage: UNK
  21. MINOCYCLINE [Concomitant]
     Active Substance: MINOCYCLINE HYDROCHLORIDE
     Dosage: UNK
  22. NIFEDIPINE [Concomitant]
     Active Substance: NIFEDIPINE
     Dosage: UNK
  23. PHENAZOPYRIDINE [Concomitant]
     Active Substance: PHENAZOPYRIDINE
     Dosage: UNK
  24. ROSUVASTATIN [Concomitant]
     Active Substance: ROSUVASTATIN
     Dosage: UNK
  25. SINGULAIR [Concomitant]
     Active Substance: MONTELUKAST SODIUM
     Dosage: UNK
  26. ZOFRAN [Concomitant]
     Active Substance: ONDANSETRON HYDROCHLORIDE
     Dosage: UNK

REACTIONS (8)
  - Abdominal discomfort [Unknown]
  - Drug interaction [Unknown]
  - Illness [Unknown]
  - Nasopharyngitis [Unknown]
  - Bone disorder [Recovering/Resolving]
  - Rash [Unknown]
  - Dry skin [Recovered/Resolved]
  - Eczema [Recovered/Resolved]
